FAERS Safety Report 18774338 (Version 3)
Quarter: 2021Q1

REPORT INFORMATION
  Report Type: Report from Study
  Country: AU (occurrence: AU)
  Receive Date: 20210122
  Receipt Date: 20210318
  Transmission Date: 20210419
  Serious: Yes (Death)
  Sender: FDA-Public Use
  Company Number: AU-KARYOPHARM-2021KPT000036

PATIENT
  Age: 75 Year
  Sex: Female

DRUGS (1)
  1. SELINEXOR [Suspect]
     Active Substance: SELINEXOR
     Indication: DIFFUSE LARGE B-CELL LYMPHOMA
     Dosage: UNK
     Route: 048
     Dates: start: 202010

REACTIONS (5)
  - Diffuse large B-cell lymphoma refractory [Fatal]
  - Fatigue [Recovered/Resolved]
  - Nausea [Recovered/Resolved]
  - Vomiting [Recovered/Resolved]
  - Somnolence [Recovered/Resolved]

NARRATIVE: CASE EVENT DATE: 202010
